FAERS Safety Report 7068004-0 (Version None)
Quarter: 2010Q4

REPORT INFORMATION
  Report Type: 
  Country: None (occurrence: None)
  Receive Date: 20101028
  Receipt Date: 20100816
  Transmission Date: 20110411
  Serious: No
  Sender: FDA-Public Use
  Company Number: US-MYLANLABS-2010S1015051

PATIENT
  Age: 85 Year
  Sex: Male
  Weight: 70.31 kg

DRUGS (4)
  1. TAMSULOSIN HCL [Suspect]
     Indication: BENIGN PROSTATIC HYPERPLASIA
     Route: 048
     Dates: start: 20100501
  2. CARBIDOPA AND LEVODOPA [Concomitant]
  3. LEXAPRO [Concomitant]
  4. NAMENDA [Concomitant]

REACTIONS (2)
  - DRUG INEFFECTIVE [None]
  - URINARY RETENTION [None]
